FAERS Safety Report 8206809-0 (Version None)
Quarter: 2012Q1

REPORT INFORMATION
  Report Type: 
  Country: None (occurrence: None)
  Receive Date: 20120308
  Receipt Date: 20120223
  Transmission Date: 20120608
  Serious: Yes (Other)
  Sender: FDA-Public Use
  Company Number: AEUSA201200106

PATIENT
  Age: 36 Year
  Sex: Female
  Weight: 81.6475 kg

DRUGS (1)
  1. IMMUNE GLOBULIN (HUMAN) [Suspect]
     Dosage: 35 GM; TOTAL; IV
     Route: 042
     Dates: start: 20120202

REACTIONS (4)
  - URTICARIA [None]
  - OEDEMA PERIPHERAL [None]
  - RASH PAPULAR [None]
  - PALMAR ERYTHEMA [None]
